FAERS Safety Report 25429704 (Version 1)
Quarter: 2025Q2

REPORT INFORMATION
  Report Type: Spontaneous
  Country: FR (occurrence: FR)
  Receive Date: 20250612
  Receipt Date: 20250612
  Transmission Date: 20250717
  Serious: Yes (Hospitalization)
  Sender: ELI LILLY AND COMPANY
  Company Number: FR-ELI_LILLY_AND_COMPANY-FR202505007490

PATIENT
  Age: 67 Year
  Sex: Female
  Weight: 57 kg

DRUGS (3)
  1. RETEVMO [Suspect]
     Active Substance: SELPERCATINIB
     Indication: RET gene fusion cancer
     Dosage: 160MG, BID
     Route: 048
     Dates: start: 20241111, end: 20241120
  2. RETEVMO [Suspect]
     Active Substance: SELPERCATINIB
     Dosage: 40MG, BID
     Route: 048
     Dates: start: 20241212
  3. HYDROXYCHLOROQUINE DIPHOSPHATE [Concomitant]
     Active Substance: HYDROXYCHLOROQUINE DIPHOSPHATE
     Indication: Product used for unknown indication
     Route: 065

REACTIONS (3)
  - Toxic skin eruption [Recovered/Resolved with Sequelae]
  - Arthralgia [Unknown]
  - Hepatic cytolysis [Unknown]

NARRATIVE: CASE EVENT DATE: 20241119
